FAERS Safety Report 23936788 (Version 3)
Quarter: 2024Q2

REPORT INFORMATION
  Report Type: Spontaneous
  Country: US (occurrence: None)
  Receive Date: 20240604
  Receipt Date: 20240617
  Transmission Date: 20240716
  Serious: No
  Sender: FDA-Public Use
  Company Number: 2024A126591

PATIENT
  Age: 70 Year
  Sex: Female

DRUGS (4)
  1. CALQUENCE [Suspect]
     Active Substance: ACALABRUTINIB
     Indication: Chronic lymphocytic leukaemia
     Route: 048
  2. CALQUENCE [Suspect]
     Active Substance: ACALABRUTINIB
     Indication: Chronic lymphocytic leukaemia
  3. COVID-19 VACCINE NOS [Suspect]
     Active Substance: COVID-19 VACCINE
  4. SYNTHROID [Concomitant]
     Active Substance: LEVOTHYROXINE SODIUM
     Dosage: 80.0UG UNKNOWN
     Dates: start: 1979

REACTIONS (2)
  - COVID-19 [Unknown]
  - Illness [Unknown]
